FAERS Safety Report 18459470 (Version 18)
Quarter: 2022Q3

REPORT INFORMATION
  Report Type: Spontaneous
  Country: US (occurrence: US)
  Receive Date: 20201103
  Receipt Date: 20220801
  Transmission Date: 20221026
  Serious: Yes (Hospitalization, Other)
  Sender: FDA-Public Use
  Company Number: US-PFIZER INC-2020419019

PATIENT
  Age: 50 Year
  Sex: Female
  Weight: 56.06 kg

DRUGS (14)
  1. GENOTROPIN [Suspect]
     Active Substance: SOMATROPIN
     Indication: Hypopituitarism
     Dosage: 0.4 MG, 1X/DAY
     Route: 058
     Dates: start: 2020
  2. GENOTROPIN [Suspect]
     Active Substance: SOMATROPIN
     Indication: Secondary adrenocortical insufficiency
     Dosage: 0.4 MG, DAILY
     Route: 058
  3. GENOTROPIN [Suspect]
     Active Substance: SOMATROPIN
     Indication: Secondary hypogonadism
     Dosage: 0.4 MG, DAILY
     Dates: start: 20201204
  4. GENOTROPIN [Suspect]
     Active Substance: SOMATROPIN
     Dosage: 0.4 MG, DAILY (0.4MG, ADMINISTERED EITHER LOWER ABDOMEN OR HIPS DAILY)
  5. ACYCLOVIR [Concomitant]
     Active Substance: ACYCLOVIR
     Dosage: 400 MG, 1X/DAY
     Route: 048
  6. BOTOX [Concomitant]
     Active Substance: ONABOTULINUMTOXINA
     Dosage: 100 IU, EVERY 3 MONTHS
  7. CLONAZEPAM [Concomitant]
     Active Substance: CLONAZEPAM
     Dosage: 0.5 MG, 3X/DAY
     Route: 048
  8. KEPPRA [Concomitant]
     Active Substance: LEVETIRACETAM
     Dosage: 1250 MG, DAILY
     Route: 048
  9. LEVOTHYROXINE [Concomitant]
     Active Substance: LEVOTHYROXINE
     Dosage: 200 UG, DAILY
     Route: 048
  10. PIROXICAM [Concomitant]
     Active Substance: PIROXICAM
     Dosage: 40 MG, 1X/DAY
     Route: 048
  11. PROAIR HFA [Concomitant]
     Active Substance: ALBUTEROL SULFATE
     Dosage: UNK
  12. PROLIA [Concomitant]
     Active Substance: DENOSUMAB
     Dosage: UNK
     Route: 058
  13. VALIUM [Concomitant]
     Active Substance: DIAZEPAM
     Dosage: 5 MG, UNKNOWN FREQUENCY
     Dates: start: 20201118
  14. NORDITROPIN [Concomitant]
     Active Substance: SOMATROPIN
     Dosage: UNK

REACTIONS (23)
  - Accidental overdose [Recovered/Resolved]
  - Device use issue [Unknown]
  - Exposure via skin contact [Unknown]
  - Adrenal insufficiency [Unknown]
  - Device issue [Unknown]
  - Drug dose omission by device [Unknown]
  - Senile osteoporosis [Unknown]
  - Malaise [Unknown]
  - Amnesia [Unknown]
  - Anxiety [Unknown]
  - Asthenia [Unknown]
  - Chest discomfort [Unknown]
  - Confusional state [Not Recovered/Not Resolved]
  - Dizziness [Unknown]
  - Dyspnoea [Unknown]
  - Dysphonia [Unknown]
  - Fatigue [Not Recovered/Not Resolved]
  - Feeling abnormal [Not Recovered/Not Resolved]
  - Hepatic steatosis [Unknown]
  - Injection site pain [Unknown]
  - Memory impairment [Not Recovered/Not Resolved]
  - Throat tightness [Unknown]
  - Vitamin D deficiency [Unknown]

NARRATIVE: CASE EVENT DATE: 20200612
